FAERS Safety Report 20792878 (Version 2)
Quarter: 2023Q2

REPORT INFORMATION
  Report Type: Spontaneous
  Country: US (occurrence: US)
  Receive Date: 20220506
  Receipt Date: 20230531
  Transmission Date: 20230721
  Serious: Yes (Other)
  Sender: FDA-Public Use
  Company Number: US-UCBSA-2021032109

PATIENT
  Sex: Female

DRUGS (3)
  1. CIMZIA [Suspect]
     Active Substance: CERTOLIZUMAB PEGOL
     Indication: Psoriatic arthropathy
     Dosage: 200 MILLIGRAM, EV 2 WEEKS(QOW)
     Route: 058
     Dates: start: 202103
  2. CIMZIA [Suspect]
     Active Substance: CERTOLIZUMAB PEGOL
     Dosage: 200 MILLIGRAM, EV 2 WEEKS(QOW)
     Route: 058
     Dates: start: 202104
  3. CIMZIA [Suspect]
     Active Substance: CERTOLIZUMAB PEGOL
     Dosage: 400 MILLIGRAM, EV 2 WEEKS(QOW)
     Route: 058
     Dates: start: 202210

REACTIONS (10)
  - Psoriatic arthropathy [Unknown]
  - Headache [Unknown]
  - Rash erythematous [Unknown]
  - Pruritus [Unknown]
  - Burning sensation [Unknown]
  - Infection [Recovered/Resolved]
  - Fungal infection [Recovered/Resolved]
  - Acne [Recovered/Resolved]
  - Vulvovaginal mycotic infection [Recovered/Resolved]
  - Product use issue [Unknown]
